FAERS Safety Report 13669143 (Version 2)
Quarter: 2017Q3

REPORT INFORMATION
  Report Type: Report from Study
  Country: RO (occurrence: RO)
  Receive Date: 20170620
  Receipt Date: 20170703
  Transmission Date: 20171127
  Serious: Yes (Hospitalization)
  Sender: FDA-Public Use
  Company Number: RO-ASTELLAS-2017US023936

PATIENT
  Sex: Male

DRUGS (2)
  1. TARCEVA [Suspect]
     Active Substance: ERLOTINIB HYDROCHLORIDE
     Indication: LUNG NEOPLASM MALIGNANT
     Dosage: THERAPY DISCONTINUED ON AN UNSPECIFIED DATE IN YEAR 2017
     Route: 065
     Dates: start: 20161211, end: 2017
  2. TARCEVA [Suspect]
     Active Substance: ERLOTINIB HYDROCHLORIDE
     Indication: LUNG NEOPLASM MALIGNANT

REACTIONS (4)
  - Lower limb fracture [Unknown]
  - Malaise [Unknown]
  - Drug ineffective [Unknown]
  - Weight decreased [Unknown]
